FAERS Safety Report 23744699 (Version 1)
Quarter: 2024Q2

REPORT INFORMATION
  Report Type: Spontaneous
  Country: GR (occurrence: GR)
  Receive Date: 20240415
  Receipt Date: 20240415
  Transmission Date: 20240716
  Serious: Yes (Other)
  Sender: FDA-Public Use
  Company Number: None

PATIENT
  Sex: Male

DRUGS (1)
  1. FLUOXETINE HYDROCHLORIDE [Suspect]
     Active Substance: FLUOXETINE HYDROCHLORIDE
     Indication: Product used for unknown indication
     Dosage: UNK UNK, UNKNOWN
     Route: 048

REACTIONS (6)
  - Semen viscosity decreased [Recovered/Resolved]
  - Urethral disorder [Unknown]
  - Genital anaesthesia [Recovered/Resolved]
  - Orgasmic sensation decreased [Unknown]
  - Premature ejaculation [Unknown]
  - Sexual dysfunction [Unknown]
